FAERS Safety Report 25874247 (Version 1)
Quarter: 2025Q4

REPORT INFORMATION
  Report Type: Report from Study
  Country: US (occurrence: US)
  Receive Date: 20251002
  Receipt Date: 20251002
  Transmission Date: 20260118
  Serious: Yes (Hospitalization)
  Sender: BOEHRINGER INGELHEIM
  Company Number: US-BoehringerIngelheim-2024-BI-007900

PATIENT
  Age: 42 Year
  Sex: Female

DRUGS (7)
  1. OFEV [Suspect]
     Active Substance: NINTEDANIB
     Indication: Idiopathic pulmonary fibrosis
     Dates: start: 202404
  2. OFEV [Suspect]
     Active Substance: NINTEDANIB
     Indication: Interstitial lung disease
     Dates: start: 20240205
  3. OFEV [Suspect]
     Active Substance: NINTEDANIB
  4. TYVASO [Concomitant]
     Active Substance: TREPROSTINIL
     Indication: Pulmonary arterial hypertension
     Dosage: 6 BREATHS INHALED
     Dates: start: 202502
  5. TYVASO [Concomitant]
     Active Substance: TREPROSTINIL
     Dosage: 0.6MG/ML 7 BREATHS INHALED 4 TIMES DAILY
  6. TYVASO [Concomitant]
     Active Substance: TREPROSTINIL
     Dosage: INHALE 9 BREATHS BY MOUTH FOUR TIMES DAILY
  7. AMLODIPINE [Concomitant]
     Active Substance: AMLODIPINE BESYLATE
     Indication: Product used for unknown indication

REACTIONS (14)
  - Pneumothorax [Unknown]
  - COVID-19 pneumonia [Unknown]
  - Dizziness [Not Recovered/Not Resolved]
  - Hypotension [Unknown]
  - Headache [Unknown]
  - Influenza [Recovering/Resolving]
  - Fatigue [Not Recovered/Not Resolved]
  - Dyspnoea exertional [Not Recovered/Not Resolved]
  - Hypertension [Recovered/Resolved]
  - Diarrhoea [Recovered/Resolved]
  - Fungal infection [Unknown]
  - Blood pressure increased [Unknown]
  - Nausea [Not Recovered/Not Resolved]
  - Frequent bowel movements [Not Recovered/Not Resolved]
